FAERS Safety Report 16941135 (Version 1)
Quarter: 2019Q4

REPORT INFORMATION
  Report Type: Spontaneous
  Country: US (occurrence: US)
  Receive Date: 20191021
  Receipt Date: 20191021
  Transmission Date: 20200122
  Serious: Yes (Death)
  Sender: FDA-Public Use
  Company Number: US-MYLANLABS-2019M1099324

PATIENT
  Age: 12 Month
  Sex: Female

DRUGS (8)
  1. CALCIUM CARBONATE. [Suspect]
     Active Substance: CALCIUM CARBONATE
     Indication: TACHYCARDIA
     Route: 048
  2. MAGNESIUM SULFATE. [Suspect]
     Active Substance: MAGNESIUM SULFATE
     Indication: CARDIAC ARREST
     Dosage: MULTIPLE DOSES
     Route: 065
  3. CALCIUM GLUCONATE. [Suspect]
     Active Substance: CALCIUM GLUCONATE
     Indication: TORSADE DE POINTES
  4. EPINEPHRINE. [Suspect]
     Active Substance: EPINEPHRINE
     Indication: TORSADE DE POINTES
  5. MAGNESIUM SULFATE. [Suspect]
     Active Substance: MAGNESIUM SULFATE
     Indication: TORSADE DE POINTES
  6. CALCIUM GLUCONATE. [Suspect]
     Active Substance: CALCIUM GLUCONATE
     Indication: HYPOCALCAEMIA
     Dosage: 90MG ELEMENTAL CALCIUM,APPROXIMATELY 9 MG/KG DOSE
     Route: 042
  7. EPINEPHRINE. [Suspect]
     Active Substance: EPINEPHRINE
     Indication: CARDIAC ARREST
     Dosage: MULTIPLE DOSES
     Route: 065
  8. CALCIUM GLUCONATE. [Suspect]
     Active Substance: CALCIUM GLUCONATE
     Indication: CARDIAC ARREST
     Dosage: MULTIPLE DOSES
     Route: 065

REACTIONS (1)
  - Drug ineffective [Fatal]
